FAERS Safety Report 23517679 (Version 1)
Quarter: 2024Q1

REPORT INFORMATION
  Report Type: Spontaneous
  Country: US (occurrence: US)
  Receive Date: 20240213
  Receipt Date: 20240213
  Transmission Date: 20240410
  Serious: Yes (Hospitalization, Other)
  Sender: FDA-Public Use
  Company Number: US-BRISTOL-MYERS SQUIBB COMPANY-2024-021829

PATIENT
  Age: 61 Year
  Sex: Female

DRUGS (15)
  1. REVLIMID [Suspect]
     Active Substance: LENALIDOMIDE
     Indication: Plasma cell myeloma
     Route: 048
     Dates: start: 20231024
  2. REVLIMID [Suspect]
     Active Substance: LENALIDOMIDE
     Route: 048
  3. ALLEGRA ALLERGY [Concomitant]
     Active Substance: FEXOFENADINE HYDROCHLORIDE
     Dosage: GELCAPS
  4. AMLODIPINE BESYLATE [Concomitant]
     Active Substance: AMLODIPINE BESYLATE
  5. AZATHIOPRINE [Concomitant]
     Active Substance: AZATHIOPRINE
  6. DEXAMETHASONE [Concomitant]
     Active Substance: DEXAMETHASONE
  7. DIOVAN [Concomitant]
     Active Substance: VALSARTAN
  8. FARXIGA [Concomitant]
     Active Substance: DAPAGLIFLOZIN PROPANEDIOL
  9. HUMIRA [Concomitant]
     Active Substance: ADALIMUMAB
     Dosage: 20MG/0.4ML KIT
  10. IMODIUM A-D [Concomitant]
     Active Substance: LOPERAMIDE HYDROCHLORIDE
  11. ONDANSETRON [Concomitant]
     Active Substance: ONDANSETRON
  12. OZEMPIC [Concomitant]
     Active Substance: SEMAGLUTIDE
     Dosage: 0.25 MG OR 0.5 MG?DOSE 1X2MG 3ML
  13. PROAIR DIGIHALER [Concomitant]
     Active Substance: ALBUTEROL SULFATE
     Dosage: 200 PUFFS
  14. TYLENOL [Concomitant]
     Active Substance: ACETAMINOPHEN
  15. DARZALEX [Concomitant]
     Active Substance: DARATUMUMAB
     Dosage: 100MG/5ML 1 VIAL

REACTIONS (3)
  - Thrombosis [Unknown]
  - Pulmonary thrombosis [Unknown]
  - COVID-19 [Unknown]

NARRATIVE: CASE EVENT DATE: 20240101
